FAERS Safety Report 5007094-3 (Version None)
Quarter: 2006Q1

REPORT INFORMATION
  Report Type: 
  Country: None (occurrence: None)
  Receive Date: 20060330
  Receipt Date: 20051219
  Transmission Date: 20060701
  Serious: Yes (Disabling)
  Sender: FDA-Public Use
  Company Number: 2005162628

PATIENT
  Age: 55 Year
  Sex: Male
  Weight: 72.5755 kg

DRUGS (6)
  1. ZMAX [Suspect]
     Indication: INFLUENZA LIKE ILLNESS
     Dosage: ONCE, ORAL
     Route: 048
     Dates: start: 20050101, end: 20050101
  2. ZMAX [Suspect]
     Indication: NASOPHARYNGITIS
     Dosage: ONCE, ORAL
     Route: 048
     Dates: start: 20050101, end: 20050101
  3. MECLIZINE [Concomitant]
  4. SYNTHROID [Concomitant]
  5. HYTRIN [Concomitant]
  6. HYDROCODONE BITARTRATE [Concomitant]

REACTIONS (7)
  - ABDOMINAL DISCOMFORT [None]
  - ABDOMINAL PAIN UPPER [None]
  - ANAL HAEMORRHAGE [None]
  - CLOSTRIDIAL INFECTION [None]
  - DIARRHOEA [None]
  - HEADACHE [None]
  - NAUSEA [None]
